FAERS Safety Report 8769458 (Version 1)
Quarter: 2012Q4

REPORT INFORMATION
  Report Type: 
  Country: US (occurrence: US)
  Receive Date: 20120905
  Receipt Date: 20120905
  Transmission Date: 20130627
  Serious: Yes (Other)
  Sender: FDA-Public Use
  Company Number: US-MYLANLABS-2011S1024731

PATIENT
  Age: 63 Year
  Sex: Male

DRUGS (6)
  1. VIAGRA [Suspect]
     Indication: ERECTILE DYSFUNCTION
     Route: 048
     Dates: start: 20090119, end: 20090119
  2. TOLMETIN SODIUM TABLETS, USP [Suspect]
     Indication: PAIN
     Dates: end: 20090119
  3. VICODIN [Concomitant]
     Indication: PAIN
     Dosage: 5mg/500mg
  4. GLYBURIDE [Concomitant]
     Indication: TYPE 2 DIABETES MELLITUS
  5. HUMALIN [Concomitant]
  6. ACTOS [Concomitant]

REACTIONS (1)
  - Rectal haemorrhage [Recovered/Resolved]
